FAERS Safety Report 9007123 (Version 1)
Quarter: 2013Q1

REPORT INFORMATION
  Report Type: Spontaneous
  Country: US (occurrence: US)
  Receive Date: 20130110
  Receipt Date: 20130110
  Transmission Date: 20140127
  Serious: No
  Sender: FDA-Public Use
  Company Number: US-009507513-1301USA004438

PATIENT
  Sex: 0

DRUGS (1)
  1. MK-0966 [Suspect]

REACTIONS (2)
  - Blood urea increased [Unknown]
  - Blood potassium increased [Unknown]
